FAERS Safety Report 10147354 (Version 2)
Quarter: 2014Q2

REPORT INFORMATION
  Report Type: Report from Study
  Country: US (occurrence: US)
  Receive Date: 20140501
  Receipt Date: 20140516
  Transmission Date: 20141212
  Serious: Yes (Other)
  Sender: FDA-Public Use
  Company Number: US-MYLANLABS-2014S1009671

PATIENT
  Age: 16 Year
  Sex: Male
  Weight: 78 kg

DRUGS (4)
  1. AMNESTEEM CAPSULES [Suspect]
     Indication: ACNE
     Route: 048
     Dates: end: 201403
  2. ABSORICA [Suspect]
     Indication: ACNE
     Dates: start: 201311
  3. ABSORICA [Suspect]
     Indication: ACNE
     Dates: start: 201311
  4. VYVANSE [Concomitant]

REACTIONS (4)
  - Suicidal ideation [Recovered/Resolved]
  - Suicidal behaviour [Recovering/Resolving]
  - Depression [Recovering/Resolving]
  - Social problem [Recovering/Resolving]
